FAERS Safety Report 8942573 (Version 1)
Quarter: 2012Q4

REPORT INFORMATION
  Report Type: 
  Country: US (occurrence: US)
  Receive Date: 20121204
  Receipt Date: 20121204
  Transmission Date: 20130627
  Serious: No
  Sender: FDA-Public Use
  Company Number: US-VERTEX PHARMACEUTICALS INC.-2012-025467

PATIENT
  Age: 58 Year
  Sex: Male
  Weight: 107 kg

DRUGS (3)
  1. INCIVEK [Suspect]
     Indication: HEPATITIS C
     Dosage: 750 mg, tid
     Dates: start: 20121109
  2. RIBAVIRIN [Suspect]
     Indication: HEPATITIS C
     Dosage: 600mg am, 400 mg pm, bid
     Route: 048
     Dates: start: 20121109
  3. PEGASYS [Suspect]
     Indication: HEPATITIS C
     Dosage: UNK
     Route: 058
     Dates: start: 20121109

REACTIONS (2)
  - Anal pruritus [Not Recovered/Not Resolved]
  - Anorectal discomfort [Not Recovered/Not Resolved]
